FAERS Safety Report 8349289-7 (Version None)
Quarter: 2012Q2

REPORT INFORMATION
  Report Type: 
  Country: None (occurrence: None)
  Receive Date: 20120510
  Receipt Date: 20120509
  Transmission Date: 20120825
  Serious: Yes (Death, Other)
  Sender: FDA-Public Use
  Company Number: PHFR2012GB000519

PATIENT
  Sex: Male

DRUGS (1)
  1. CLOZARIL [Suspect]
     Indication: SCHIZOPHRENIA
     Route: 048
     Dates: start: 20070911

REACTIONS (7)
  - PARKINSON'S DISEASE [None]
  - DEATH [None]
  - DYSPHAGIA [None]
  - PARKINSONISM [None]
  - DEMENTIA [None]
  - MALAISE [None]
  - LOWER RESPIRATORY TRACT INFECTION [None]
